FAERS Safety Report 6032034-8 (Version None)
Quarter: 2009Q1

REPORT INFORMATION
  Report Type: 
  Country: None (occurrence: None)
  Receive Date: 20090107
  Receipt Date: 20081228
  Transmission Date: 20090719
  Serious: Yes (Other)
  Sender: FDA-Public Use
  Company Number: 1-17194718

PATIENT
  Age: 46 Year
  Sex: Female

DRUGS (1)
  1. PREDNISONE TABLET 5 MG [Suspect]
     Indication: SJOGREN'S SYNDROME
     Dosage: 1 MG/KG DAILY, ORAL
     Route: 048

REACTIONS (1)
  - SICKLE CELL ANAEMIA WITH CRISIS [None]
